FAERS Safety Report 9949350 (Version 1)
Quarter: 2014Q1

REPORT INFORMATION
  Report Type: Spontaneous
  Country: US (occurrence: US)
  Receive Date: 20140304
  Receipt Date: 20140304
  Transmission Date: 20141002
  Serious: No
  Sender: FDA-Public Use
  Company Number: US-PFIZER INC-2014057146

PATIENT
  Age: 76 Year
  Sex: Female
  Weight: 66.67 kg

DRUGS (5)
  1. DETROL LA [Suspect]
     Indication: HYPERTONIC BLADDER
     Dosage: 4 MG, DAILY
     Route: 048
     Dates: start: 2004
  2. ESTRACE [Suspect]
     Indication: HYPERTONIC BLADDER
     Dosage: UNK, 2X/WEEK
     Route: 067
     Dates: start: 2004
  3. VERAPAMIL [Concomitant]
     Indication: HYPERTENSION
     Dosage: DAILY
  4. ASPIRIN [Concomitant]
     Indication: HYPERTENSION
     Dosage: 81 MG, DAILY
  5. MECLIZINE [Concomitant]
     Indication: VERTIGO
     Dosage: UNKNOWN DOSE 3 TO 4 TIMES A DAY

REACTIONS (1)
  - Drug ineffective [Unknown]
